FAERS Safety Report 8571022-4 (Version None)
Quarter: 2012Q3

REPORT INFORMATION
  Report Type: 
  Country: None (occurrence: None)
  Receive Date: 20120806
  Receipt Date: 20120725
  Transmission Date: 20120928
  Serious: No
  Sender: FDA-Public Use
  Company Number: US-009507513-1207USA012413

PATIENT

DRUGS (1)
  1. PROVENTIL [Suspect]
     Dosage: UNK
     Route: 055
     Dates: start: 20120201

REACTIONS (1)
  - DRUG INEFFECTIVE [None]
